FAERS Safety Report 9605777 (Version 1)
Quarter: 2013Q4

REPORT INFORMATION
  Report Type: Spontaneous
  Country: US (occurrence: US)
  Receive Date: 20131008
  Receipt Date: 20131008
  Transmission Date: 20140711
  Serious: No
  Sender: FDA-Public Use
  Company Number: US-AMGEN-USASP2013046584

PATIENT
  Age: 52 Year
  Sex: Female

DRUGS (3)
  1. XGEVA [Suspect]
     Indication: MUSCULOSKELETAL DISORDER
     Dosage: UNK
     Dates: start: 2012
  2. PROLIA [Concomitant]
     Dosage: UNK
  3. LUPRON [Concomitant]
     Dosage: UNK

REACTIONS (2)
  - Injection site discolouration [Unknown]
  - Incorrect route of drug administration [Unknown]
